FAERS Safety Report 6836829-X (Version None)
Quarter: 2010Q3

REPORT INFORMATION
  Report Type: 
  Country: None (occurrence: None)
  Receive Date: 20100713
  Receipt Date: 20070501
  Transmission Date: 20110219
  Serious: No
  Sender: FDA-Public Use
  Company Number: US-PFIZER INC-2007036222

PATIENT
  Sex: Female
  Weight: 54.43 kg

DRUGS (5)
  1. CHANTIX [Suspect]
     Indication: EX-TOBACCO USER
     Dates: start: 20070416, end: 20070424
  2. FORADIL [Concomitant]
  3. COMBIVENT [Concomitant]
  4. NEXIUM [Concomitant]
  5. LORTAB [Concomitant]

REACTIONS (3)
  - BED REST [None]
  - NAUSEA [None]
  - TREMOR [None]
